FAERS Safety Report 12355815 (Version 1)
Quarter: 2016Q2

REPORT INFORMATION
  Report Type: Spontaneous
  Country: US (occurrence: US)
  Receive Date: 20160511
  Receipt Date: 20160511
  Transmission Date: 20160815
  Serious: Yes (Hospitalization, Other)
  Sender: FDA-Public Use
  Company Number: US-MDT-ADR-2016-00429

PATIENT
  Age: 57 Year
  Sex: Female

DRUGS (7)
  1. BACLOFEN. [Suspect]
     Active Substance: BACLOFEN
     Route: 048
  2. PEPCID [Suspect]
     Active Substance: FAMOTIDINE
  3. BACLOFEN. [Suspect]
     Active Substance: BACLOFEN
     Route: 037
  4. ZOFRAN [Suspect]
     Active Substance: ONDANSETRON HYDROCHLORIDE
  5. STOOL SOFTENER [Suspect]
     Active Substance: DOCUSATE CALCIUM
  6. KEFLEX [Suspect]
     Active Substance: CEPHALEXIN
  7. ZINTHROID [Suspect]
     Active Substance: UNSPECIFIED INGREDIENT

REACTIONS (2)
  - Hypertonia [Unknown]
  - Multiple sclerosis [Unknown]

NARRATIVE: CASE EVENT DATE: 201602
